FAERS Safety Report 11584054 (Version 11)
Quarter: 2016Q3

REPORT INFORMATION
  Report Type: Report from Study
  Country: CA (occurrence: CA)
  Receive Date: 20151001
  Receipt Date: 20160722
  Transmission Date: 20161109
  Serious: Yes (Life-Threatening, Hospitalization, Other)
  Sender: FDA-Public Use
  Company Number: CA-VALIDUS PHARMACEUTICALS LLC-CA-2015VAL000490

PATIENT

DRUGS (18)
  1. METOPROLOL TARTRATE. [Suspect]
     Active Substance: METOPROLOL TARTRATE
     Dosage: 25 MG, BID
     Route: 048
  2. SANDOSTATIN LAR DEPOT [Suspect]
     Active Substance: OCTREOTIDE ACETATE
     Indication: CARCINOID SYNDROME
     Dosage: 40 MG, BIW (EVERY 2 WEEKS)
     Route: 030
     Dates: start: 20111012
  3. SANDOSTATIN LAR DEPOT [Suspect]
     Active Substance: OCTREOTIDE ACETATE
     Dosage: 30 MG, BIW EVERY 2 WEEKS
     Route: 030
     Dates: end: 20110927
  4. SANDOSTATIN LAR DEPOT [Suspect]
     Active Substance: OCTREOTIDE ACETATE
     Dosage: 60 MG, BIW (EVERY 2 WEEKS)
     Route: 030
  5. SANDOSTATIN [Suspect]
     Active Substance: OCTREOTIDE ACETATE
     Indication: CARCINOID SYNDROME
     Dosage: UNK UG, ONCE/SINGLE
     Route: 058
     Dates: start: 20110927, end: 20110927
  6. CRESTOR [Concomitant]
     Active Substance: ROSUVASTATIN CALCIUM
     Indication: PRODUCT USED FOR UNKNOWN INDICATION
     Dosage: UNK
  7. GLIMEPIRIDE. [Concomitant]
     Active Substance: GLIMEPIRIDE
     Indication: PRODUCT USED FOR UNKNOWN INDICATION
     Dosage: UNK
  8. SANDOSTATIN LAR DEPOT [Suspect]
     Active Substance: OCTREOTIDE ACETATE
     Dosage: 30 MG, UNK
     Route: 030
     Dates: start: 20140606
  9. LANTUS [Concomitant]
     Active Substance: INSULIN GLARGINE
     Indication: PRODUCT USED FOR UNKNOWN INDICATION
     Dosage: BEDTIME
     Route: 058
  10. NOVORAPID [Concomitant]
     Active Substance: INSULIN ASPART
     Indication: PRODUCT USED FOR UNKNOWN INDICATION
     Dosage: 4 TO 5 TIMES A DAY
     Route: 058
  11. METFORMIN [Concomitant]
     Active Substance: METFORMIN HYDROCHLORIDE
     Indication: PRODUCT USED FOR UNKNOWN INDICATION
     Dosage: UNK
  12. RABEPRAZOLE [Concomitant]
     Active Substance: RABEPRAZOLE
     Indication: PRODUCT USED FOR UNKNOWN INDICATION
     Dosage: UNK
  13. METOPROLOL TARTRATE. [Suspect]
     Active Substance: METOPROLOL TARTRATE
     Dosage: 25 MG, QD
     Route: 048
  14. SANDOSTATIN LAR DEPOT [Suspect]
     Active Substance: OCTREOTIDE ACETATE
     Dosage: 20 MG, BIW EVERY 2 WEEKS
     Route: 030
  15. ASAPHEN [Concomitant]
     Active Substance: ASPIRIN
     Indication: PRODUCT USED FOR UNKNOWN INDICATION
     Dosage: UNK
  16. METOPROLOL TARTRATE. [Suspect]
     Active Substance: METOPROLOL TARTRATE
     Indication: PRODUCT USED FOR UNKNOWN INDICATION
     Dosage: 50 MG, BID
     Route: 048
  17. SANDOSTATIN LAR DEPOT [Suspect]
     Active Substance: OCTREOTIDE ACETATE
     Dosage: 40 MG, BIW (EVERY 2 WEEKS)
     Route: 030
  18. RAMIPRIL. [Concomitant]
     Active Substance: RAMIPRIL
     Indication: PRODUCT USED FOR UNKNOWN INDICATION
     Dosage: UNK

REACTIONS (45)
  - Diabetes mellitus [Unknown]
  - Blood pressure systolic increased [Unknown]
  - Sleep disorder [Unknown]
  - Blood pressure diastolic decreased [Unknown]
  - Flushing [Unknown]
  - Dyspnoea [Unknown]
  - Abdominal pain upper [Unknown]
  - Oncologic complication [Unknown]
  - Macular degeneration [Unknown]
  - Arthralgia [Unknown]
  - Therapeutic response decreased [Unknown]
  - Needle issue [Unknown]
  - Gastrointestinal hypomotility [Unknown]
  - 5-hydroxyindolacetic acid in urine increased [Unknown]
  - Diarrhoea [Unknown]
  - Asthenia [Unknown]
  - Heart rate decreased [Unknown]
  - Injection site scar [Unknown]
  - Malignant neoplasm progression [Unknown]
  - Abdominal mass [Unknown]
  - Gait disturbance [Unknown]
  - Frequent bowel movements [Unknown]
  - Feeling abnormal [Unknown]
  - Injection site discomfort [Unknown]
  - Injection site pain [Unknown]
  - Incorrect dose administered [Unknown]
  - Abdominal pain [Unknown]
  - Blood glucose fluctuation [Unknown]
  - Abdominal distension [Unknown]
  - Injection site mass [Unknown]
  - Inappropriate schedule of drug administration [Unknown]
  - Syncope [Unknown]
  - Discomfort [Recovering/Resolving]
  - Hyperhidrosis [Unknown]
  - Hypotension [Unknown]
  - Visual impairment [Unknown]
  - Blood chromogranin A increased [Unknown]
  - Abdominal discomfort [Unknown]
  - Blood glucose decreased [Unknown]
  - Injection site bruising [Unknown]
  - Disorientation [Recovering/Resolving]
  - Visual acuity reduced [Unknown]
  - Nausea [Unknown]
  - Fatigue [Unknown]
  - Underdose [Unknown]

NARRATIVE: CASE EVENT DATE: 20111012
